FAERS Safety Report 23567361 (Version 4)
Quarter: 2024Q2

REPORT INFORMATION
  Report Type: Spontaneous
  Country: US (occurrence: US)
  Receive Date: 20240226
  Receipt Date: 20240419
  Transmission Date: 20240716
  Serious: Yes (Hospitalization, Other)
  Sender: FDA-Public Use
  Company Number: US-PFIZER INC-PV202400024341

PATIENT
  Age: 61 Year
  Sex: Female

DRUGS (1)
  1. IBRANCE [Suspect]
     Active Substance: PALBOCICLIB
     Dosage: 125 MG

REACTIONS (8)
  - Blood iron decreased [Recovering/Resolving]
  - Haemoglobin decreased [Recovering/Resolving]
  - Blood test abnormal [Unknown]
  - Tooth extraction [Unknown]
  - White blood cell count decreased [Unknown]
  - Weight decreased [Unknown]
  - Epistaxis [Unknown]
  - Feeling cold [Recovering/Resolving]

NARRATIVE: CASE EVENT DATE: 20240201
